FAERS Safety Report 8029149-1 (Version None)
Quarter: 2012Q1

REPORT INFORMATION
  Report Type: 
  Country: None (occurrence: None)
  Receive Date: 20120106
  Receipt Date: 20120102
  Transmission Date: 20120608
  Serious: Yes (Other)
  Sender: FDA-Public Use
  Company Number: PHHY2012BR000766

PATIENT
  Sex: Female

DRUGS (1)
  1. FORMOTEROL FUMARATE [Suspect]
     Indication: ASTHMA
     Dosage: 1 DF, QD

REACTIONS (3)
  - GLAUCOMA [None]
  - HYPERTHYROIDISM [None]
  - ASTHMA [None]
